FAERS Safety Report 25018297 (Version 1)
Quarter: 2025Q1

REPORT INFORMATION
  Report Type: Spontaneous
  Country: GB (occurrence: GB)
  Receive Date: 20250227
  Receipt Date: 20250227
  Transmission Date: 20250409
  Serious: Yes (Other)
  Sender: PFIZER
  Company Number: None

PATIENT
  Age: 59 Year
  Sex: Male

DRUGS (2)
  1. ALPROSTADIL [Suspect]
     Active Substance: ALPROSTADIL
     Route: 017
     Dates: start: 20250210, end: 20250224
  2. ALPROSTADIL [Suspect]
     Active Substance: ALPROSTADIL
     Route: 017

REACTIONS (1)
  - Muscle spasms [Recovered/Resolved]

NARRATIVE: CASE EVENT DATE: 20250210
